FAERS Safety Report 8047748-8 (Version None)
Quarter: 2012Q1

REPORT INFORMATION
  Report Type: 
  Country: None (occurrence: None)
  Receive Date: 20120116
  Receipt Date: 20120112
  Transmission Date: 20120608
  Serious: Yes (Other)
  Sender: FDA-Public Use
  Company Number: CHPA2011DE018868

PATIENT
  Sex: Male
  Weight: 90 kg

DRUGS (1)
  1. IBUPROFEN [Suspect]
     Indication: NASOPHARYNGITIS
     Dosage: 400 MG, TID
     Route: 048
     Dates: start: 20111017, end: 20111020

REACTIONS (6)
  - BURNING SENSATION [None]
  - PAIN IN EXTREMITY [None]
  - ERYTHEMA [None]
  - NAIL DISORDER [None]
  - OEDEMA PERIPHERAL [None]
  - NAIL GROWTH ABNORMAL [None]
